FAERS Safety Report 10601089 (Version 1)
Quarter: 2014Q4

REPORT INFORMATION
  Report Type: Spontaneous
  Country: GB (occurrence: GB)
  Receive Date: 20141124
  Receipt Date: 20141124
  Transmission Date: 20150529
  Serious: Yes (Hospitalization)
  Sender: FDA-Public Use
  Company Number: GB-TEVA-522981ISR

PATIENT
  Age: 36 Year
  Sex: Male

DRUGS (11)
  1. DICLOFENAC [Suspect]
     Active Substance: DICLOFENAC
     Indication: BACK PAIN
     Dosage: STOPPED AS SPC NOTES LIVER ADVERSE EFFECTS
     Route: 048
     Dates: start: 20140905, end: 20140926
  2. LANSOPRAZOLE. [Suspect]
     Active Substance: LANSOPRAZOLE
     Route: 048
     Dates: start: 20090902
  3. GAVISCON [Concomitant]
     Active Substance: ALUMINUM HYDROXIDE\MAGNESIUM CARBONATE
     Indication: DYSPEPSIA
     Dosage: CONTINUED
     Route: 048
     Dates: start: 20090902
  4. RADIX ANGELICAE [Suspect]
     Active Substance: HERBALS
     Indication: PAIN
     Route: 048
     Dates: start: 20140801, end: 20140831
  5. FLUOXETINE [Concomitant]
     Active Substance: FLUOXETINE\FLUOXETINE HYDROCHLORIDE
     Indication: DEPRESSION
     Dosage: CONTINUING.
     Route: 048
     Dates: start: 20091101
  6. FLOS CARTHAMI [Suspect]
     Active Substance: SAFFLOWER
     Indication: PAIN
     Route: 048
     Dates: start: 20140801, end: 20140831
  7. RADIX SCROPHULARIAE [Suspect]
     Active Substance: HERBALS
     Indication: PAIN
     Route: 048
     Dates: start: 20140801, end: 20140831
  8. RADIX CODONOPSIS [Suspect]
     Active Substance: HERBALS
     Indication: PAIN
     Route: 048
     Dates: start: 20140801, end: 20140831
  9. ETORICOXIB [Suspect]
     Active Substance: ETORICOXIB
     Indication: BACK PAIN
     Route: 048
     Dates: start: 20090902
  10. CORYDALIS YANHUSUO RHIZOME [Suspect]
     Active Substance: HERBALS
     Indication: PAIN
     Route: 048
     Dates: start: 20140801, end: 20140902
  11. RETINERVUS LUFFAE FRUCTUS [Suspect]
     Active Substance: HERBALS
     Indication: PAIN
     Route: 048
     Dates: start: 20140801, end: 20140831

REACTIONS (2)
  - Liver disorder [Recovering/Resolving]
  - Abdominal pain [Recovered/Resolved]
